FAERS Safety Report 20198334 (Version 2)
Quarter: 2022Q1

REPORT INFORMATION
  Report Type: Spontaneous
  Country: JP (occurrence: JP)
  Receive Date: 20211217
  Receipt Date: 20220117
  Transmission Date: 20220423
  Serious: Yes (Hospitalization, Other)
  Sender: FDA-Public Use
  Company Number: JP-GLAXOSMITHKLINE-JP2021JPN255354

PATIENT
  Age: 42 Year
  Sex: Female

DRUGS (1)
  1. LAMICTAL [Suspect]
     Active Substance: LAMOTRIGINE
     Dosage: UNK

REACTIONS (16)
  - Drug reaction with eosinophilia and systemic symptoms [Recovering/Resolving]
  - Pyrexia [Recovering/Resolving]
  - Rash [Recovering/Resolving]
  - Lymphadenopathy [Recovering/Resolving]
  - Acute hepatic failure [Recovering/Resolving]
  - Asterixis [Recovering/Resolving]
  - Cardiac failure [Recovering/Resolving]
  - Renal failure [Recovering/Resolving]
  - Lymphocyte morphology abnormal [Recovering/Resolving]
  - Abdominal pain [Recovering/Resolving]
  - Hepatomegaly [Recovering/Resolving]
  - Erythema [Recovering/Resolving]
  - Lymphadenopathy [Recovering/Resolving]
  - Urine output decreased [Recovering/Resolving]
  - Multi-organ disorder [Recovering/Resolving]
  - Depression [Unknown]
